FAERS Safety Report 25237059 (Version 2)
Quarter: 2025Q2

REPORT INFORMATION
  Report Type: Report from Study
  Country: KR (occurrence: KR)
  Receive Date: 20250425
  Receipt Date: 20250505
  Transmission Date: 20250717
  Serious: Yes (Hospitalization, Other)
  Sender: ABBVIE
  Company Number: KR-ABBVIE-6244481

PATIENT
  Age: 61 Year
  Sex: Male

DRUGS (10)
  1. SKYRIZI [Suspect]
     Active Substance: RISANKIZUMAB-RZAA
     Indication: Psoriasis
     Route: 058
     Dates: start: 20240517, end: 20240517
  2. SKYRIZI [Suspect]
     Active Substance: RISANKIZUMAB-RZAA
     Route: 058
     Dates: start: 20250211, end: 20250211
  3. SKYRIZI [Suspect]
     Active Substance: RISANKIZUMAB-RZAA
     Route: 058
     Dates: start: 20240416, end: 20240416
  4. SKYRIZI [Suspect]
     Active Substance: RISANKIZUMAB-RZAA
     Route: 058
     Dates: start: 20240819, end: 20240819
  5. SKYRIZI [Suspect]
     Active Substance: RISANKIZUMAB-RZAA
     Route: 058
     Dates: start: 20241112, end: 20241112
  6. Topisol [Concomitant]
     Indication: Psoriasis
     Dosage: UNIT DOSE : 1 APPLICATION?MILK LOTION
     Route: 061
     Dates: start: 20240416
  7. Bepoten [Concomitant]
     Indication: Psoriasis
     Route: 048
     Dates: start: 20240416
  8. Enstilum [Concomitant]
     Indication: Psoriasis
     Dosage: UNIT DOSE : 1 APPLICATION?FOAM
     Route: 061
     Dates: start: 20231226
  9. Evoprim [Concomitant]
     Indication: Psoriasis
     Route: 058
     Dates: start: 20240416
  10. Ebastel boryung [Concomitant]
     Indication: Psoriasis
     Route: 048
     Dates: start: 20240416

REACTIONS (1)
  - Lung neoplasm malignant [Recovered/Resolved]

NARRATIVE: CASE EVENT DATE: 20240801
